FAERS Safety Report 14783042 (Version 1)
Quarter: 2018Q2

REPORT INFORMATION
  Report Type: Spontaneous
  Country: FR (occurrence: FR)
  Receive Date: 20180420
  Receipt Date: 20180420
  Transmission Date: 20180711
  Serious: Yes (Other)
  Sender: FDA-Public Use
  Company Number: FR-MERCK KGAA-2046137

PATIENT
  Age: 54 Year
  Sex: Female

DRUGS (1)
  1. NOVOTHYROX [Suspect]
     Active Substance: LEVOTHYROXINE SODIUM
     Indication: PRODUCT USED FOR UNKNOWN INDICATION

REACTIONS (35)
  - Gamma-glutamyltransferase increased [None]
  - Nausea [None]
  - Fall [None]
  - Blood alkaline phosphatase increased [None]
  - Dizziness [None]
  - Oedema peripheral [None]
  - Tachycardia [None]
  - Chest pain [None]
  - Emotional distress [None]
  - Mobility decreased [None]
  - Loss of personal independence in daily activities [None]
  - Blood thyroid stimulating hormone abnormal [None]
  - Eye disorder [None]
  - Dyspnoea [None]
  - Muscular weakness [None]
  - Poor quality sleep [None]
  - Muscle spasms [None]
  - Alopecia [None]
  - Depressed mood [None]
  - Pelvic pain [None]
  - Alanine aminotransferase increased [None]
  - Aspartate aminotransferase increased [None]
  - Gait disturbance [None]
  - Somnolence [None]
  - Fatigue [None]
  - Myalgia [None]
  - Anxiety [None]
  - C-reactive protein increased [None]
  - Arthralgia [None]
  - Confusional state [None]
  - Hypertension [None]
  - Pain in extremity [None]
  - Headache [None]
  - Mood swings [None]
  - Nervousness [None]

NARRATIVE: CASE EVENT DATE: 20170519
